FAERS Safety Report 23526904 (Version 1)
Quarter: 2024Q1

REPORT INFORMATION
  Report Type: Spontaneous
  Country: US (occurrence: US)
  Receive Date: 20240215
  Receipt Date: 20240215
  Transmission Date: 20240409
  Serious: Yes (Other)
  Sender: FDA-Public Use
  Company Number: US-AZURITY PHARMACEUTICALS, INC.-US-2024AZR000129

PATIENT
  Age: 24 Year
  Sex: Female

DRUGS (7)
  1. LISINOPRIL [Suspect]
     Active Substance: LISINOPRIL
     Indication: Lupus nephritis
     Dosage: 20 MG, QD
     Route: 048
  2. LISINOPRIL [Suspect]
     Active Substance: LISINOPRIL
     Dosage: 5 MG, QD (REDUCED)
     Route: 048
  3. HYDROXYCHLOROQUINE [Suspect]
     Active Substance: HYDROXYCHLOROQUINE
     Indication: Lupus nephritis
     Dosage: 200 MG, QD
     Route: 065
  4. PREDNISONE [Suspect]
     Active Substance: PREDNISONE
     Indication: Lupus nephritis
     Dosage: 80 MG, QD
     Route: 048
  5. PREDNISONE [Suspect]
     Active Substance: PREDNISONE
     Dosage: 10 MG, QD (TAPER)
     Route: 048
  6. PREDNISONE [Suspect]
     Active Substance: PREDNISONE
     Dosage: 60 MG, EVERY OTHER DAY (INCREASED)
     Route: 048
  7. MYCOPHENOLATE MOFETIL [Suspect]
     Active Substance: MYCOPHENOLATE MOFETIL
     Indication: Product used for unknown indication
     Dosage: 1500 MG, BID
     Route: 048

REACTIONS (6)
  - Polyuria [Unknown]
  - Polydipsia [Unknown]
  - Hyperglycaemia [Unknown]
  - Joint swelling [Unknown]
  - Hypotension [Unknown]
  - Product use in unapproved indication [Unknown]
